FAERS Safety Report 6287596-2 (Version None)
Quarter: 2009Q3

REPORT INFORMATION
  Report Type: 
  Country: None (occurrence: None)
  Receive Date: 20090727
  Receipt Date: 20090727
  Transmission Date: 20100115
  Serious: Yes (Other)
  Sender: FDA-Public Use
  Company Number: None

PATIENT
  Sex: Female
  Weight: 65.7716 kg

DRUGS (3)
  1. EVISTA [Suspect]
     Indication: OSTEOPOROSIS
     Dosage: 1 TABLET DAILY
     Dates: start: 20080401, end: 20090601
  2. HYDROCHLOROTHIAZIDE [Concomitant]
  3. CALCITONIN [Concomitant]

REACTIONS (7)
  - DECREASED ACTIVITY [None]
  - DEPRESSION [None]
  - DRUG INEFFECTIVE [None]
  - HYPERSOMNIA [None]
  - LETHARGY [None]
  - ROSACEA [None]
  - SKIN EXFOLIATION [None]
